FAERS Safety Report 9210356 (Version 3)
Quarter: 2013Q2

REPORT INFORMATION
  Report Type: Spontaneous
  Country: FR (occurrence: FR)
  Receive Date: 20130404
  Receipt Date: 20130614
  Transmission Date: 20140414
  Serious: Yes (Death, Other)
  Sender: FDA-Public Use
  Company Number: PHHY2013FR032720

PATIENT
  Age: 47 Year
  Sex: Male

DRUGS (3)
  1. TASIGNA [Suspect]
     Indication: CHRONIC MYELOID LEUKAEMIA
     Dosage: 2 DF, QD
     Route: 048
     Dates: start: 20121112
  2. NOVONORM [Concomitant]
     Route: 048
  3. DIAMICRON [Concomitant]
     Route: 048

REACTIONS (3)
  - Malaise [Fatal]
  - Sudden death [Fatal]
  - Headache [Unknown]
